FAERS Safety Report 5688162-X (Version None)
Quarter: 2008Q1

REPORT INFORMATION
  Report Type: 
  Country: None (occurrence: None)
  Receive Date: 20080327
  Receipt Date: 20080318
  Transmission Date: 20080703
  Serious: Yes (Hospitalization)
  Sender: FDA-Public Use
  Company Number: 2008-01925

PATIENT
  Age: 68 Year
  Sex: Male

DRUGS (1)
  1. FUROSEMIDE [Suspect]
     Indication: OEDEMA
     Dates: start: 20060501

REACTIONS (3)
  - CARDIAC FAILURE [None]
  - POLYNEUROPATHY [None]
  - VITAMIN B1 DEFICIENCY [None]
